FAERS Safety Report 7617384-3 (Version None)
Quarter: 2011Q3

REPORT INFORMATION
  Report Type: 
  Country: None (occurrence: None)
  Receive Date: 20110718
  Receipt Date: 20110711
  Transmission Date: 20111222
  Serious: No
  Sender: FDA-Public Use
  Company Number: US-PFIZER INC-2011156884

PATIENT
  Sex: Female

DRUGS (1)
  1. CHANTIX [Suspect]
     Dosage: UNK

REACTIONS (6)
  - NERVOUSNESS [None]
  - DISTURBANCE IN ATTENTION [None]
  - DIARRHOEA [None]
  - CONSTIPATION [None]
  - FEELING ABNORMAL [None]
  - DRY MOUTH [None]
